FAERS Safety Report 16613719 (Version 1)
Quarter: 2019Q3

REPORT INFORMATION
  Report Type: Spontaneous
  Country: US (occurrence: US)
  Receive Date: 20190608
  Receipt Date: 20190608
  Transmission Date: 20191004
  Serious: No
  Sender: FDA-Public Use
  Company Number: None

PATIENT
  Age: 63 Year
  Sex: Female

DRUGS (4)
  1. GABAPENTIN. [Concomitant]
     Active Substance: GABAPENTIN
  2. HYDROXYZINE [Concomitant]
     Active Substance: HYDROXYZINE HYDROCHLORIDE
  3. GLATIRAMER 40MG PFS INJ (12/BOX) [Suspect]
     Active Substance: GLATIRAMER
     Dates: start: 201902
  4. LORAZEPAM. [Concomitant]
     Active Substance: LORAZEPAM

REACTIONS (4)
  - Therapy cessation [None]
  - Product storage error [None]
  - Muscle spasms [None]
  - Product substitution issue [None]

NARRATIVE: CASE EVENT DATE: 20190606
